FAERS Safety Report 5335169-8 (Version None)
Quarter: 2007Q2

REPORT INFORMATION
  Report Type: 
  Country: None (occurrence: None)
  Receive Date: 20070525
  Receipt Date: 20070515
  Transmission Date: 20071010
  Serious: Yes (Other)
  Sender: FDA-Public Use
  Company Number: US-PFIZER INC-2007018860

PATIENT
  Sex: Male
  Weight: 85.3 kg

DRUGS (14)
  1. LIPITOR [Suspect]
     Indication: BLOOD CHOLESTEROL INCREASED
  2. LYRICA [Interacting]
     Indication: HERPES ZOSTER
  3. LYRICA [Interacting]
     Indication: POST HERPETIC NEURALGIA
  4. DRUG USED IN DIABETES [Interacting]
     Indication: BLOOD GLUCOSE INCREASED
  5. ACCUPRIL [Concomitant]
  6. NIACIN [Concomitant]
  7. FOLIC ACID [Concomitant]
  8. VITAMIN B6 [Concomitant]
  9. VITAMIN B-12 [Concomitant]
  10. ACETYLSALICYLIC ACID SRT [Concomitant]
  11. PERCOCET [Concomitant]
  12. POTASSIUM ACETATE [Concomitant]
  13. VITAMINS [Concomitant]
  14. ALL OTHER THERAPEUTIC PRODUCTS [Concomitant]

REACTIONS (14)
  - BLOOD PRESSURE DECREASED [None]
  - DRUG INTERACTION [None]
  - GASTROINTESTINAL DISORDER [None]
  - HERPES ZOSTER [None]
  - HIGH DENSITY LIPOPROTEIN DECREASED [None]
  - HYPOREFLEXIA [None]
  - JOINT SWELLING [None]
  - MUSCLE ATROPHY [None]
  - NERVE INJURY [None]
  - OEDEMA PERIPHERAL [None]
  - PIGMENTATION DISORDER [None]
  - PROSTATIC SPECIFIC ANTIGEN INCREASED [None]
  - RED BLOOD CELL COUNT ABNORMAL [None]
  - SLEEP DISORDER [None]
